FAERS Safety Report 22897029 (Version 2)
Quarter: 2023Q4

REPORT INFORMATION
  Report Type: Spontaneous
  Country: US (occurrence: US)
  Receive Date: 20230902
  Receipt Date: 20231030
  Transmission Date: 20240110
  Serious: No
  Sender: FDA-Public Use
  Company Number: US-PHARMAESSENTIA CORPORATION-US-2023-PEC-001534

PATIENT
  Sex: Female

DRUGS (1)
  1. BESREMI [Suspect]
     Active Substance: ROPEGINTERFERON ALFA-2B-NJFT
     Indication: Polycythaemia vera
     Dosage: 100 MICROGRAM, Q2W
     Route: 058
     Dates: start: 20230517

REACTIONS (5)
  - Oropharyngeal pain [Recovered/Resolved]
  - Rash macular [Recovered/Resolved]
  - Injection site induration [Unknown]
  - Injection site rash [Unknown]
  - Pruritus [Recovered/Resolved]
